FAERS Safety Report 5386157-7 (Version None)
Quarter: 2007Q3

REPORT INFORMATION
  Report Type: 
  Country: None (occurrence: None)
  Receive Date: 20070711
  Receipt Date: 20070711
  Transmission Date: 20080115
  Serious: Yes (Other)
  Sender: FDA-Public Use
  Company Number: None

PATIENT
  Age: 30 Year
  Sex: Female

DRUGS (1)
  1. PHENTERMINE HYDROCHLORIDE [Suspect]
     Dosage: 37.5 MG PO Q DAILY
     Route: 048

REACTIONS (2)
  - INTENTIONAL OVERDOSE [None]
  - SUICIDAL IDEATION [None]
